FAERS Safety Report 20659208 (Version 1)
Quarter: 2022Q1

REPORT INFORMATION
  Report Type: Report from Study
  Country: TW (occurrence: None)
  Receive Date: 20220331
  Receipt Date: 20220331
  Transmission Date: 20220423
  Serious: Yes (Hospitalization)
  Sender: FDA-Public Use
  Company Number: 2022A127965

PATIENT
  Age: 59 Year
  Sex: Female

DRUGS (1)
  1. IMFINZI [Suspect]
     Active Substance: DURVALUMAB
     Route: 042
     Dates: start: 20220124

REACTIONS (3)
  - Hypersensitivity [Unknown]
  - Pleural effusion [Unknown]
  - Dyspnoea [Unknown]
